FAERS Safety Report 17411933 (Version 7)
Quarter: 2020Q3

REPORT INFORMATION
  Report Type: Report from Study
  Country: None (occurrence: US)
  Receive Date: 20200213
  Receipt Date: 20200723
  Transmission Date: 20201102
  Serious: Yes (Hospitalization, Other)
  Sender: FDA-Public Use
  Company Number: US-ABBVIE-20K-163-3271996-00

PATIENT
  Sex: Female

DRUGS (3)
  1. HUMIRA [Suspect]
     Active Substance: ADALIMUMAB
     Indication: RHEUMATOID ARTHRITIS
     Dosage: CITRATE FREE
     Route: 058
     Dates: start: 2017
  2. METHOTREXATE. [Concomitant]
     Active Substance: METHOTREXATE
     Indication: PRODUCT USED FOR UNKNOWN INDICATION
  3. HUMIRA [Suspect]
     Active Substance: ADALIMUMAB
     Route: 058

REACTIONS (12)
  - Lung neoplasm malignant [Recovered/Resolved]
  - Pain [Recovering/Resolving]
  - Polyp [Unknown]
  - Gastrointestinal haemorrhage [Recovering/Resolving]
  - Epistaxis [Recovered/Resolved]
  - Faeces discoloured [Unknown]
  - Post procedural haemorrhage [Unknown]
  - Rectal fissure [Unknown]
  - Haemoglobin decreased [Recovered/Resolved]
  - Coronary artery occlusion [Not Recovered/Not Resolved]
  - Radioembolisation [Unknown]
  - Hypoacusis [Unknown]
